FAERS Safety Report 8103906-5 (Version None)
Quarter: 2012Q1

REPORT INFORMATION
  Report Type: 
  Country: None (occurrence: None)
  Receive Date: 20120127
  Receipt Date: 20120112
  Transmission Date: 20120608
  Serious: Yes (Hospitalization)
  Sender: FDA-Public Use
  Company Number: 2011HGS-002918

PATIENT
  Age: 44 Year
  Sex: Female
  Weight: 104.3273 kg

DRUGS (16)
  1. FLEXERIL [Concomitant]
  2. PHENOBARBITAL TAB [Concomitant]
  3. NEURONTIN [Concomitant]
  4. CALCITROL (CALCITROL) (ERGOCALCIFEROL, RETINOL, CALCIUM CARBONATE) [Concomitant]
  5. CALCIUM SULFATE (CALCIUM) [Concomitant]
  6. NORVASC [Concomitant]
  7. HYDROCHLOROTHIAZIDE [Concomitant]
  8. BENLYSTA [Suspect]
     Indication: SYSTEMIC LUPUS ERYTHEMATOSUS
     Dosage: 10MG/KG, 1 IN 28 D, INTRAVENOUS DRIP
     Route: 041
     Dates: start: 20110919
  9. HYDROXYCHLOROQUINE SULFATE [Concomitant]
  10. CELLCEPT [Concomitant]
  11. MAGNESIUM [Concomitant]
  12. CLONIDINE [Concomitant]
  13. TRAMADOL HCL [Concomitant]
  14. LORTAB (VICODIN) (PARACETAMOL, HYDROCODONE BITARTRATE) [Concomitant]
  15. NEXIUM [Concomitant]
  16. PREDNISONE [Concomitant]

REACTIONS (13)
  - CERVICOBRACHIAL SYNDROME [None]
  - NAUSEA [None]
  - BLOOD PRESSURE INCREASED [None]
  - OEDEMA PERIPHERAL [None]
  - PRURITUS [None]
  - DIARRHOEA [None]
  - HEADACHE [None]
  - SKIN DISCOLOURATION [None]
  - PLEURISY [None]
  - DYSPNOEA [None]
  - CONDITION AGGRAVATED [None]
  - NON-CARDIAC CHEST PAIN [None]
  - ABDOMINAL PAIN UPPER [None]
